FAERS Safety Report 6161035-4 (Version None)
Quarter: 2009Q2

REPORT INFORMATION
  Report Type: 
  Country: None (occurrence: None)
  Receive Date: 20090420
  Receipt Date: 20090407
  Transmission Date: 20091009
  Serious: Yes (Other)
  Sender: FDA-Public Use
  Company Number: JP-PFIZER INC-2008161344

PATIENT

DRUGS (22)
  1. AMLODIPINE BESYLATE [Suspect]
     Indication: HYPERTENSION
     Dosage: 10 MG, 1X/DAY
     Route: 048
     Dates: start: 20050316, end: 20080904
  2. NORVASC [Concomitant]
     Indication: HYPERTENSION
     Dosage: 10 MG, 1X/DAY
     Route: 048
     Dates: end: 20030707
  3. ZYLORIC ^FAES^ [Concomitant]
     Indication: HYPERURICAEMIA
     Dosage: 100 MG, 1X/DAY
     Route: 048
     Dates: end: 20080122
  4. NU LOTAN [Concomitant]
     Indication: HYPERTENSION
     Dosage: 50 MG, 1X/DAY
     Route: 048
     Dates: end: 20030910
  5. BUFFERIN [Concomitant]
     Dosage: 81 MG, 1X/DAY
     Route: 048
     Dates: end: 20030707
  6. GASTER OD [Concomitant]
     Indication: GASTRITIS
     Dosage: 10 MG, 1X/DAY
     Route: 048
     Dates: end: 20030707
  7. LONGES [Concomitant]
     Indication: HYPERTENSION
     Dosage: 10 MG, 1X/DAY
     Route: 048
     Dates: start: 20030707, end: 20031104
  8. LONGES [Concomitant]
     Dosage: 20 MG, 1X/DAY
     Route: 048
     Dates: start: 20031105, end: 20070131
  9. DIOVANE [Concomitant]
     Indication: HYPERTENSION
     Dosage: 80 MG, 1X/DAY
     Route: 048
     Dates: start: 20030911, end: 20031207
  10. DIOVANE [Concomitant]
     Dosage: 160 MG, 1X/DAY
     Route: 048
     Dates: start: 20031208, end: 20080228
  11. CONIEL [Concomitant]
     Indication: HYPERTENSION
     Dosage: 8 MG, 1X/DAY
     Route: 048
     Dates: start: 20031105, end: 20040218
  12. ADALAT [Concomitant]
     Indication: HYPERTENSION
     Dosage: 40 MG, 1X/DAY
     Route: 048
     Dates: start: 20040219, end: 20041117
  13. ADALAT CC [Concomitant]
     Indication: HYPERTENSION
     Dosage: 40 MG, 1X/DAY
     Route: 048
     Dates: start: 20041118, end: 20050317
  14. ESPO [Concomitant]
     Indication: NEPHROGENIC ANAEMIA
     Dosage: 12 IU, 1X/DAY
     Route: 058
     Dates: start: 20050608, end: 20080108
  15. ESPO [Concomitant]
     Dosage: 3 IU, 1X/DAY
     Route: 042
     Dates: start: 20080116, end: 20080619
  16. CALCIUM POLYSTYRENE SULFONATE [Concomitant]
     Indication: NEPHROGENIC ANAEMIA
     Dosage: 25 G, 1X/DAY
     Route: 048
     Dates: start: 20050609, end: 20050831
  17. ROCALTROL [Concomitant]
     Indication: HYPERPARATHYROIDISM SECONDARY
     Dosage: 0.25 UG, 1X/DAY
     Route: 048
     Dates: start: 20080129
  18. VASOLAN [Concomitant]
     Indication: TACHYCARDIA
     Dosage: 160 MG, 1X/DAY
     Route: 048
     Dates: start: 20080209, end: 20081204
  19. CARDENALIN [Concomitant]
     Indication: HYPERTENSION
     Dosage: 8 MG, 1X/DAY
     Route: 048
     Dates: start: 20080228
  20. NESPO ^AMGEN^ [Concomitant]
     Indication: HYPERTENSION
     Dosage: 60 UG, 1X/DAY
     Route: 042
     Dates: start: 20080624
  21. MICARDIS [Concomitant]
     Indication: HYPERTENSION
     Dosage: 40 MG, 1X/DAY
     Route: 048
     Dates: start: 20080913
  22. MAINTATE [Concomitant]
     Indication: HYPERTENSION
     Dosage: 2.5 MG, 1X/DAY
     Route: 048
     Dates: start: 20081120

REACTIONS (1)
  - ANAEMIA [None]
